FAERS Safety Report 15170926 (Version 13)
Quarter: 2021Q3

REPORT INFORMATION
  Report Type: Spontaneous
  Country: US (occurrence: US)
  Receive Date: 20180720
  Receipt Date: 20210915
  Transmission Date: 20211014
  Serious: Yes (Death, Other)
  Sender: FDA-Public Use
  Company Number: US-SA-2018SA194724

PATIENT
  Age: 88 Year
  Sex: Male

DRUGS (2)
  1. DUPIXENT [Suspect]
     Active Substance: DUPILUMAB
     Dosage: 300 MG, QOW
     Route: 058
     Dates: start: 201805
  2. DUPIXENT [Suspect]
     Active Substance: DUPILUMAB
     Indication: DERMATITIS ATOPIC
     Dosage: 600 MG, 1X
     Route: 058
     Dates: start: 20180515, end: 20180515

REACTIONS (10)
  - Vision blurred [Unknown]
  - Rhinalgia [Unknown]
  - Blood iron decreased [Unknown]
  - Eye pruritus [Unknown]
  - Dermatitis atopic [Unknown]
  - Nasal dryness [Unknown]
  - Death [Fatal]
  - Dry eye [Unknown]
  - Pruritus [Unknown]
  - Dry skin [Unknown]

NARRATIVE: CASE EVENT DATE: 20180711
